FAERS Safety Report 21982171 (Version 1)
Quarter: 2023Q1

REPORT INFORMATION
  Report Type: Spontaneous
  Country: EC (occurrence: EC)
  Receive Date: 20230213
  Receipt Date: 20230213
  Transmission Date: 20230418
  Serious: Yes (Hospitalization)
  Sender: FDA-Public Use
  Company Number: EC-ROCHE-3277239

PATIENT
  Age: 9 Year
  Sex: Male

DRUGS (1)
  1. CLONAZEPAM [Suspect]
     Active Substance: CLONAZEPAM
     Indication: Product used for unknown indication

REACTIONS (5)
  - Syncope [Unknown]
  - Vomiting [Unknown]
  - Hypersomnia [Unknown]
  - Somnolence [Unknown]
  - Intentional product misuse [Unknown]
